FAERS Safety Report 11813312 (Version 1)
Quarter: 2015Q4

REPORT INFORMATION
  Report Type: Spontaneous
  Country: GB (occurrence: GB)
  Receive Date: 20151209
  Receipt Date: 20151209
  Transmission Date: 20160305
  Serious: Yes (Other)
  Sender: FDA-Public Use
  Company Number: GB-BRISTOL-MYERS SQUIBB COMPANY-BMS-2001-000016

PATIENT
  Age: 28 Year
  Sex: Female

DRUGS (2)
  1. TINZAPARIN [Concomitant]
     Active Substance: TINZAPARIN
     Indication: PRODUCT USED FOR UNKNOWN INDICATION
     Dosage: 1 DF, QD
     Route: 065
  2. COUMADIN [Suspect]
     Active Substance: WARFARIN SODIUM
     Indication: MITRAL VALVE REPLACEMENT
     Dosage: UNK
     Route: 048

REACTIONS (6)
  - Caesarean section [Unknown]
  - Acute pulmonary oedema [Unknown]
  - Pregnancy [Recovered/Resolved]
  - Premature delivery [Unknown]
  - General physical health deterioration [Unknown]
  - Cerebrovascular accident [Unknown]
